FAERS Safety Report 16260681 (Version 1)
Quarter: 2019Q2

REPORT INFORMATION
  Report Type: Spontaneous
  Country: US (occurrence: US)
  Receive Date: 20190327
  Receipt Date: 20190327
  Transmission Date: 20190711
  Serious: Yes (Hospitalization, Disabling, Other)
  Sender: FDA-Public Use
  Company Number: None

PATIENT
  Age: 80 Year
  Sex: Female
  Weight: 68.04 kg

DRUGS (14)
  1. MYRBETRIQ [Concomitant]
     Active Substance: MIRABEGRON
  2. METROPROLOL TARTRATE 25MG [Concomitant]
  3. LORATADINE 10MG [Concomitant]
     Active Substance: LORATADINE
  4. LOSARTAN 50MG [Concomitant]
     Active Substance: LOSARTAN
  5. MELATONIN 3MG [Concomitant]
  6. GLUCOSAMINE HCI W/CONDROITIN 1200MG [Concomitant]
  7. LEVOTHYROXIN 100MCG [Concomitant]
  8. GLUCOSAMINE HCI 1500MG [Concomitant]
  9. ALENDRONATE [Suspect]
     Active Substance: ALENDRONATE SODIUM
     Indication: OSTEOPENIA
     Dosage: ?          QUANTITY:12 TABLETS  DOSAGE FORM;OTHER FREQUENCY:ONCE WKLY BEFORE  BREAKFAST?
     Route: 048
     Dates: start: 20180411, end: 20180620
  10. ATORVASTATIN (LIPITOR) 80MG [Concomitant]
  11. ESTRING [Concomitant]
     Active Substance: ESTRADIOL
  12. CLOBETASOL PROPIONATE USP CREAM 0.05% [Concomitant]
  13. ASPIRIN 325MG [Concomitant]
     Active Substance: ASPIRIN
  14. MICRO DAILY MULTIVITAMIN .98G [Concomitant]

REACTIONS (1)
  - Blindness [None]

NARRATIVE: CASE EVENT DATE: 20180613
